FAERS Safety Report 7936332-X (Version None)
Quarter: 2011Q4

REPORT INFORMATION
  Report Type: 
  Country: None (occurrence: None)
  Receive Date: 20111121
  Receipt Date: 20111109
  Transmission Date: 20120403
  Serious: Yes (Hospitalization)
  Sender: FDA-Public Use
  Company Number: 2011MA016457

PATIENT
  Age: 82 Year
  Sex: Female

DRUGS (7)
  1. ENALAPRIL MALEATE [Suspect]
     Indication: CARDIAC FAILURE
     Dosage: PO
     Route: 048
     Dates: start: 20100301, end: 20110907
  2. SPIRONOLACTONE [Suspect]
     Indication: CARDIAC FAILURE
     Dosage: PO
     Route: 048
     Dates: start: 20100301, end: 20110907
  3. ASPIRIN [Concomitant]
  4. ATENOLOL [Concomitant]
  5. LOSARTAN POTASSIUM [Suspect]
     Dosage: PO
     Route: 048
     Dates: start: 20100301, end: 20110907
  6. SERTRALINE HYDROCHLORIDE [Concomitant]
  7. FUROSEMIDE [Concomitant]

REACTIONS (2)
  - RENAL FAILURE ACUTE [None]
  - NEPHROPATHY TOXIC [None]
